FAERS Safety Report 17581952 (Version 1)
Quarter: 2020Q1

REPORT INFORMATION
  Report Type: Spontaneous
  Country: NL (occurrence: FR)
  Receive Date: 20200325
  Receipt Date: 20200325
  Transmission Date: 20200409
  Serious: Yes (Life-Threatening)
  Sender: FDA-Public Use
  Company Number: FR-FRESENIUS KABI-FK202002992

PATIENT
  Age: 22 Year
  Sex: Female

DRUGS (5)
  1. PROPOFOL (MANUFACTURER UNKNOWN) [Suspect]
     Active Substance: PROPOFOL
     Indication: ANAESTHESIA
     Dosage: UNSPECIFIED
     Route: 042
     Dates: start: 20060426, end: 20060426
  2. SUFENTANIL [Suspect]
     Active Substance: SUFENTANIL
     Indication: ANAESTHESIA
     Dosage: UNSPECIFIED
     Route: 042
     Dates: start: 20060426, end: 20060426
  3. ATRACURIUM [Suspect]
     Active Substance: ATRACURIUM
     Indication: ANAESTHESIA
     Dosage: UNSPECIFIED
     Route: 042
     Dates: start: 20060426, end: 20060426
  4. MIDAZOLAM. [Suspect]
     Active Substance: MIDAZOLAM
     Indication: ANAESTHESIA
     Dosage: UNSPECIFIED
     Route: 042
     Dates: start: 20060426, end: 20060426
  5. CEFAZOLIN [Suspect]
     Active Substance: CEFAZOLIN
     Indication: PROPHYLAXIS
     Dosage: UNSPECIFIED
     Route: 042
     Dates: start: 20060426, end: 20060426

REACTIONS (3)
  - Anaphylactic shock [Recovered/Resolved]
  - Hypotension [Recovered/Resolved]
  - Rash [Recovered/Resolved]

NARRATIVE: CASE EVENT DATE: 20060426
